FAERS Safety Report 6999315-2 (Version None)
Quarter: 2010Q3

REPORT INFORMATION
  Report Type: 
  Country: None (occurrence: None)
  Receive Date: 20100920
  Receipt Date: 20090721
  Transmission Date: 20110219
  Serious: Yes (Other)
  Sender: FDA-Public Use
  Company Number: US-ASTRAZENECA-2007UW05932

PATIENT
  Age: 17679 Day
  Sex: Male
  Weight: 99.2 kg

DRUGS (7)
  1. SEROQUEL [Suspect]
     Route: 048
     Dates: start: 20051214
  2. ABILIFY [Concomitant]
     Route: 048
     Dates: start: 20051214
  3. TRICOR [Concomitant]
     Route: 048
     Dates: start: 20051214
  4. ASPIRIN [Concomitant]
     Route: 048
     Dates: start: 20051214
  5. DIPHENHYDRAMINE HCL [Concomitant]
     Dosage: 50 TO 100 MG
     Dates: start: 20051214
  6. CYMBALTA [Concomitant]
     Dates: start: 20051214
  7. METOPROLOL [Concomitant]
     Route: 048
     Dates: start: 20051214

REACTIONS (3)
  - DIABETES MELLITUS [None]
  - KETOACIDOSIS [None]
  - PANCREATITIS [None]
